FAERS Safety Report 22010794 (Version 1)
Quarter: 2023Q1

REPORT INFORMATION
  Report Type: Spontaneous
  Country: GB (occurrence: GB)
  Receive Date: 20230220
  Receipt Date: 20230220
  Transmission Date: 20230418
  Serious: Yes (Hospitalization)
  Sender: FDA-Public Use
  Company Number: GB-VERTEX PHARMACEUTICALS-2023-002385

PATIENT
  Sex: Female

DRUGS (6)
  1. ELEXACAFTOR\IVACAFTOR\TEZACAFTOR [Suspect]
     Active Substance: ELEXACAFTOR\IVACAFTOR\TEZACAFTOR
     Indication: Cystic fibrosis
     Dosage: 2 TABS (75 MG IVA/ 50 MG TEZA/ 100 MG ELEXA) IN AM
     Route: 048
     Dates: start: 2020
  2. KALYDECO [Suspect]
     Active Substance: IVACAFTOR
     Indication: Cystic fibrosis
     Dosage: UNK
     Route: 048
     Dates: start: 2020
  3. ATORVASTATIN [Concomitant]
     Active Substance: ATORVASTATIN
  4. PREDNISOLONE [Concomitant]
     Active Substance: PREDNISOLONE
  5. PULMOZYME [Concomitant]
     Active Substance: DORNASE ALFA
  6. COLOMYCIN [Concomitant]

REACTIONS (1)
  - Lower respiratory tract infection [Not Recovered/Not Resolved]
